FAERS Safety Report 22815522 (Version 2)
Quarter: 2023Q4

REPORT INFORMATION
  Report Type: Spontaneous
  Country: GB (occurrence: GB)
  Receive Date: 20230811
  Receipt Date: 20231006
  Transmission Date: 20240110
  Serious: Yes (Death, Other)
  Sender: FDA-Public Use
  Company Number: GB-ROCHE-3257440

PATIENT
  Sex: Male

DRUGS (10)
  1. GEMCITABINE [Suspect]
     Active Substance: GEMCITABINE
     Indication: Diffuse large B-cell lymphoma
     Dosage: UNK
     Route: 065
     Dates: start: 20220101, end: 20220301
  2. CISPLATIN [Suspect]
     Active Substance: CISPLATIN
     Indication: Diffuse large B-cell lymphoma
     Dosage: UNK
     Route: 065
     Dates: start: 20220101, end: 20220301
  3. CYCLOPHOSPHAMIDE [Suspect]
     Active Substance: CYCLOPHOSPHAMIDE
     Indication: Diffuse large B-cell lymphoma
     Dosage: UNK
     Route: 065
     Dates: start: 20210901, end: 20220101
  4. DEXAMETHASONE [Suspect]
     Active Substance: DEXAMETHASONE
     Indication: Diffuse large B-cell lymphoma
     Dosage: UNK
     Route: 065
     Dates: start: 20220101, end: 20220301
  5. DOXORUBICIN [Suspect]
     Active Substance: DOXORUBICIN
     Indication: Diffuse large B-cell lymphoma
     Dosage: UNK
     Route: 065
     Dates: start: 20210901, end: 20220101
  6. POLATUZUMAB VEDOTIN [Suspect]
     Active Substance: POLATUZUMAB VEDOTIN
     Indication: Diffuse large B-cell lymphoma
     Dosage: UNK
     Route: 065
     Dates: start: 20220401, end: 20220501
  7. PREDNISONE [Suspect]
     Active Substance: PREDNISONE
     Indication: Diffuse large B-cell lymphoma
     Dosage: UNK
     Route: 065
     Dates: start: 20210901, end: 20220101
  8. RITUXIMAB [Suspect]
     Active Substance: RITUXIMAB
     Indication: Diffuse large B-cell lymphoma
     Dosage: UNK
     Route: 065
     Dates: start: 20210901, end: 20220101
  9. VINCRISTINE [Suspect]
     Active Substance: VINCRISTINE
     Indication: Diffuse large B-cell lymphoma
     Dosage: UNK
     Route: 065
     Dates: start: 20210901, end: 20220101
  10. BENDAMUSTINE [Suspect]
     Active Substance: BENDAMUSTINE
     Indication: Product used for unknown indication
     Dosage: UNK
     Route: 065

REACTIONS (4)
  - Disease progression [Unknown]
  - Drug ineffective [Unknown]
  - Diffuse large B-cell lymphoma [Unknown]
  - Lymphoma [Fatal]
